FAERS Safety Report 18651585 (Version 2)
Quarter: 2021Q1

REPORT INFORMATION
  Report Type: Spontaneous
  Country: PT (occurrence: PT)
  Receive Date: 20201223
  Receipt Date: 20210121
  Transmission Date: 20210419
  Serious: Yes (Disabling)
  Sender: FDA-Public Use
  Company Number: PT-009507513-2012PRT007694

PATIENT
  Weight: 80 kg

DRUGS (4)
  1. GABAPENTIN. [Concomitant]
     Active Substance: GABAPENTIN
     Indication: MIGRAINE PROPHYLAXIS
     Dosage: 600 MILLIGRAM, QD
     Route: 048
  2. SIMVASTATIN. [Suspect]
     Active Substance: SIMVASTATIN
     Indication: HYPERCHOLESTEROLAEMIA
     Dosage: 20 MILLIGRAM, QD, ONCE A DAY
     Route: 048
     Dates: start: 20200801, end: 20201122
  3. AMLODIPINE (+) PERINDOPRIL [Concomitant]
     Dosage: 1 DOSAGE FORM, QD
     Route: 048
  4. ASPIRIN. [Concomitant]
     Active Substance: ASPIRIN
     Dosage: 100 MILLIGRAM, QD
     Route: 048

REACTIONS (1)
  - Pain [Unknown]

NARRATIVE: CASE EVENT DATE: 20201101
